FAERS Safety Report 7000504-1 (Version None)
Quarter: 2010Q3

REPORT INFORMATION
  Report Type: 
  Country: None (occurrence: None)
  Receive Date: 20100920
  Receipt Date: 20091210
  Transmission Date: 20110219
  Serious: Yes (Hospitalization, Other)
  Sender: FDA-Public Use
  Company Number: US-ASTRAZENECA-2007UW06069

PATIENT
  Age: 15539 Day
  Sex: Male
  Weight: 97.1 kg

DRUGS (15)
  1. SEROQUEL [Suspect]
     Indication: INSOMNIA
     Route: 048
     Dates: start: 20000701, end: 20040801
  2. SEROQUEL [Suspect]
     Route: 048
     Dates: start: 20030101
  3. ABILIFY [Concomitant]
  4. HALDOL [Concomitant]
     Dates: start: 19940101
  5. THORAZINE [Concomitant]
     Dosage: 50 TO 100 MG
     Dates: start: 20060101
  6. TRILAFON [Concomitant]
  7. ASPIRIN [Concomitant]
     Route: 048
     Dates: start: 20050101
  8. METFORMIN [Concomitant]
     Route: 048
     Dates: start: 20020101
  9. ATENOLOL [Concomitant]
     Route: 048
     Dates: start: 20050101
  10. REMERON [Concomitant]
     Route: 048
     Dates: start: 20050107
  11. COZAAR [Concomitant]
     Route: 048
     Dates: start: 20050101
  12. TRAZODONE HCL [Concomitant]
     Route: 048
     Dates: start: 20050107
  13. ZIPRASIDONE HCL [Concomitant]
     Dates: start: 20050106
  14. LOSARTAN POTASSIUM [Concomitant]
     Dates: start: 20050107
  15. RISPERDAL [Concomitant]
     Route: 048
     Dates: start: 20050408

REACTIONS (4)
  - BLOOD CHOLESTEROL INCREASED [None]
  - BLOOD GLUCOSE INCREASED [None]
  - DIABETES MELLITUS INADEQUATE CONTROL [None]
  - TYPE 2 DIABETES MELLITUS [None]
